FAERS Safety Report 13089118 (Version 1)
Quarter: 2017Q1

REPORT INFORMATION
  Report Type: Spontaneous
  Country: US (occurrence: US)
  Receive Date: 20170104
  Receipt Date: 20170104
  Transmission Date: 20170428
  Serious: Yes (Hospitalization, Disabling)
  Sender: FDA-Public Use
  Company Number: None

PATIENT
  Age: 25 Year
  Sex: Female
  Weight: 81 kg

DRUGS (1)
  1. SULFAMETHOXAZOLE/TRIMETHROPRIM VISTA PHARMACEUTICAL [Suspect]
     Active Substance: SULFAMETHOXAZOLE\TRIMETHOPRIM
     Indication: ARTHROPOD BITE
     Dosage: ?          QUANTITY:1 CAPSULE(S);?
     Route: 048
     Dates: start: 20160423, end: 20160430

REACTIONS (6)
  - Connective tissue disorder [None]
  - Platelet count decreased [None]
  - Renal failure [None]
  - Sepsis [None]
  - Coagulopathy [None]
  - Sjogren^s syndrome [None]

NARRATIVE: CASE EVENT DATE: 20160424
